FAERS Safety Report 6000105-8 (Version None)
Quarter: 2008Q4

REPORT INFORMATION
  Report Type: 
  Country: None (occurrence: None)
  Receive Date: 20081211
  Receipt Date: 20081126
  Transmission Date: 20090506
  Serious: Yes (Hospitalization)
  Sender: FDA-Public Use
  Company Number: 2008S1021225

PATIENT
  Age: 33 Year
  Sex: Female

DRUGS (2)
  1. METFORMIN HCL [Suspect]
     Indication: GESTATIONAL DIABETES
  2. COCAINE [Concomitant]

REACTIONS (5)
  - BLOOD ALCOHOL INCREASED [None]
  - DRUG EXPOSURE DURING PREGNANCY [None]
  - DRUG SCREEN POSITIVE [None]
  - LACTIC ACIDOSIS [None]
  - STILLBIRTH [None]
